FAERS Safety Report 18433998 (Version 3)
Quarter: 2021Q1

REPORT INFORMATION
  Report Type: Spontaneous
  Country: JP (occurrence: JP)
  Receive Date: 20201027
  Receipt Date: 20210330
  Transmission Date: 20210419
  Serious: Yes (Life-Threatening, Hospitalization, Other)
  Sender: FDA-Public Use
  Company Number: JP-TEVA-2020-JP-1843145

PATIENT
  Age: 76 Year
  Sex: Female

DRUGS (17)
  1. BENDAMUSTINE HYDROCHLORIDE. [Suspect]
     Active Substance: BENDAMUSTINE HYDROCHLORIDE
     Dosage: (2 CYCLE)
     Route: 042
     Dates: start: 20190905, end: 20190906
  2. ACICLOVIR [Concomitant]
     Active Substance: ACYCLOVIR
     Indication: PRODUCT USED FOR UNKNOWN INDICATION
     Dosage: 1 DOSAGE FORMS DAILY;
     Route: 048
     Dates: start: 20190821
  3. OBINUTUZUMAB. [Suspect]
     Active Substance: OBINUTUZUMAB
     Route: 042
     Dates: start: 20190828
  4. OBINUTUZUMAB. [Suspect]
     Active Substance: OBINUTUZUMAB
     Dosage: 1000 MILLIGRAM DAILY;
     Route: 042
     Dates: start: 20191127
  5. BENDAMUSTINE HYDROCHLORIDE. [Suspect]
     Active Substance: BENDAMUSTINE HYDROCHLORIDE
     Dosage: (3 CYCLE)
     Route: 042
     Dates: start: 20191003, end: 20191004
  6. BENDAMUSTINE HYDROCHLORIDE. [Suspect]
     Active Substance: BENDAMUSTINE HYDROCHLORIDE
     Dosage: (4 CYCLE)
     Route: 042
     Dates: start: 20191031, end: 20191101
  7. OBINUTUZUMAB. [Suspect]
     Active Substance: OBINUTUZUMAB
     Indication: NON-HODGKIN^S LYMPHOMA RECURRENT
     Dosage: 1000 MILLIGRAM DAILY;
     Route: 042
     Dates: start: 20190813
  8. OBINUTUZUMAB. [Suspect]
     Active Substance: OBINUTUZUMAB
     Dosage: 1000 MILLIGRAM DAILY;
     Route: 042
     Dates: start: 20190821
  9. BENDAMUSTINE HYDROCHLORIDE. [Suspect]
     Active Substance: BENDAMUSTINE HYDROCHLORIDE
     Dosage: (5 CYCLE)
     Route: 042
     Dates: start: 20191128, end: 20191129
  10. OBINUTUZUMAB. [Suspect]
     Active Substance: OBINUTUZUMAB
     Dosage: 1000 MILLIGRAM DAILY;
     Route: 042
     Dates: start: 20190904
  11. OBINUTUZUMAB. [Suspect]
     Active Substance: OBINUTUZUMAB
     Dosage: 1000 MILLIGRAM DAILY;
     Route: 042
     Dates: start: 20191030
  12. OBINUTUZUMAB. [Suspect]
     Active Substance: OBINUTUZUMAB
     Dosage: 1000 MILLIGRAM DAILY;
     Route: 042
     Dates: start: 20191225
  13. SODIUM RABEPRAZOLE [Concomitant]
     Active Substance: RABEPRAZOLE SODIUM
     Indication: PRODUCT USED FOR UNKNOWN INDICATION
     Dosage: 1 DOSAGE FORMS DAILY;
     Route: 048
     Dates: start: 20190821
  14. SULFAMETHOXAZOLE;TRIMETHOPRIM [Concomitant]
     Active Substance: SULFAMETHOXAZOLE\TRIMETHOPRIM
     Indication: PRODUCT USED FOR UNKNOWN INDICATION
     Dosage: .5 DOSAGE FORMS DAILY;
     Route: 048
     Dates: start: 20190821
  15. BENDAMUSTINE HYDROCHLORIDE. [Suspect]
     Active Substance: BENDAMUSTINE HYDROCHLORIDE
     Indication: NON-HODGKIN^S LYMPHOMA RECURRENT
     Dosage: (1 CYCLE)
     Route: 042
     Dates: start: 20190806, end: 20190807
  16. OBINUTUZUMAB. [Suspect]
     Active Substance: OBINUTUZUMAB
     Dosage: 1000 MILLIGRAM DAILY;
     Route: 042
     Dates: start: 20191002
  17. BENDAMUSTINE HYDROCHLORIDE. [Suspect]
     Active Substance: BENDAMUSTINE HYDROCHLORIDE
     Dosage: (6 CYCLE)
     Route: 042
     Dates: start: 20191226, end: 20191227

REACTIONS (1)
  - Colon cancer [Recovered/Resolved]

NARRATIVE: CASE EVENT DATE: 20200318
